FAERS Safety Report 9258051 (Version 1)
Quarter: 2013Q2

REPORT INFORMATION
  Report Type: Spontaneous
  Country: US (occurrence: US)
  Receive Date: 20130426
  Receipt Date: 20130426
  Transmission Date: 20140414
  Serious: Yes (Other)
  Sender: FDA-Public Use
  Company Number: US-BAYER-2013-052679

PATIENT
  Sex: Female

DRUGS (10)
  1. AVELOX [Suspect]
  2. LIPITOR [Concomitant]
     Dosage: 40 MG, QD
     Route: 048
  3. PLAVIX [Concomitant]
     Dosage: 1 DF, QD
     Route: 048
  4. VITAMIN B COMPLEX WITH C [Concomitant]
     Dosage: 1 DF, QD
     Route: 048
  5. ASPIRIN (E.C.) [ACETYLSALICYLIC ACID] [Concomitant]
     Dosage: 1 DF, QD
     Route: 048
  6. ATORVASTATIN CALCIUM [Concomitant]
     Dosage: 1 MG, QD
     Route: 048
  7. FISH OIL [Concomitant]
     Dosage: 1 MG, TID
     Route: 048
  8. LISINOPRIL [Concomitant]
     Dosage: 2.5 MG, QD
     Route: 048
  9. NITROSTAT [Concomitant]
     Indication: CHEST PAIN
     Dosage: 0.4 MG, PRN
     Route: 060
  10. CALCIUM CARBONATE W/VITAMIN D NOS [Concomitant]
     Dosage: 1200 MG, TID

REACTIONS (1)
  - Drug hypersensitivity [None]
